FAERS Safety Report 7445198-6 (Version None)
Quarter: 2011Q2

REPORT INFORMATION
  Report Type: 
  Country: None (occurrence: None)
  Receive Date: 20110427
  Receipt Date: 20110427
  Transmission Date: 20111010
  Serious: Yes (Hospitalization)
  Sender: FDA-Public Use
  Company Number: None

PATIENT
  Sex: Male
  Weight: 86.18 kg

DRUGS (13)
  1. FLUOROURACIL [Suspect]
     Dosage: 1604 MG
     Dates: end: 20101020
  2. AMLODIPINE BESYLATE [Concomitant]
  3. TERAZOSIN HCL [Concomitant]
  4. VARDENAFIL [Concomitant]
  5. LISINOPRIL [Concomitant]
  6. METOPROLOL TARTRATE [Concomitant]
  7. GLIPIZIDE [Concomitant]
  8. ERBITUX [Suspect]
     Dosage: 2001 MG
     Dates: end: 20101027
  9. ASPIRIN [Concomitant]
  10. OXALIPLATIN (ELOXATIN) [Suspect]
     Dosage: 340 MG
     Dates: end: 20101020
  11. LEUCOVORIN CALCIUM [Suspect]
     Dosage: 1604 MG
     Dates: end: 20101020
  12. SIMVASTATIN [Concomitant]
  13. METFORMIN HCL [Concomitant]

REACTIONS (9)
  - BODY TEMPERATURE INCREASED [None]
  - FATIGUE [None]
  - BACTEROIDES TEST POSITIVE [None]
  - MESENTERIC VEIN THROMBOSIS [None]
  - CONFUSIONAL STATE [None]
  - LEUKOCYTOSIS [None]
  - DIVERTICULITIS [None]
  - BLOOD CULTURE POSITIVE [None]
  - DECREASED APPETITE [None]
